FAERS Safety Report 13958095 (Version 3)
Quarter: 2019Q1

REPORT INFORMATION
  Report Type: Spontaneous
  Country: PT (occurrence: PT)
  Receive Date: 20170912
  Receipt Date: 20190215
  Transmission Date: 20190417
  Serious: Yes (Life-Threatening, Hospitalization, Other)
  Sender: FDA-Public Use
  Company Number: PHHY2017PT132078

PATIENT
  Age: 66 Year
  Sex: Male

DRUGS (1)
  1. RAMIPRIL+HYDROCHLOROTHIAZIDE [Suspect]
     Active Substance: HYDROCHLOROTHIAZIDE\RAMIPRIL
     Indication: HYPERTENSION
     Route: 065

REACTIONS (21)
  - Asthenia [Recovering/Resolving]
  - Gastric haemorrhage [Recovering/Resolving]
  - Haematidrosis [Recovering/Resolving]
  - Vasculitis [Recovering/Resolving]
  - Gastric mucosa erythema [Recovering/Resolving]
  - Gastrointestinal haemorrhage [Recovering/Resolving]
  - Palpable purpura [Recovering/Resolving]
  - Mucosal discolouration [Recovering/Resolving]
  - Pleural effusion [Recovering/Resolving]
  - Abdominal tenderness [Recovering/Resolving]
  - Gastric ulcer [Recovering/Resolving]
  - Petechiae [Recovering/Resolving]
  - Hypoalbuminaemia [Unknown]
  - Haematuria [Recovering/Resolving]
  - Multiple organ dysfunction syndrome [Unknown]
  - Henoch-Schonlein purpura [Recovering/Resolving]
  - Oedema peripheral [Recovering/Resolving]
  - Haematemesis [Recovering/Resolving]
  - Lacrimal haemorrhage [Recovering/Resolving]
  - Mucosal ulceration [Recovering/Resolving]
  - Blood immunoglobulin A increased [Recovering/Resolving]
